FAERS Safety Report 8665034 (Version 2)
Quarter: 2012Q4

REPORT INFORMATION
  Report Type: 
  Country: US (occurrence: US)
  Receive Date: 20120716
  Receipt Date: 20120831
  Transmission Date: 20130627
  Serious: Yes (Death)
  Sender: FDA-Public Use
  Company Number: US-BRISTOL-MYERS SQUIBB COMPANY-16756702

PATIENT
  Age: 71 Year
  Sex: Female

DRUGS (5)
  1. ABILIFY [Suspect]
     Dosage: therapy duration:almost a year
  2. PAXIL [Concomitant]
  3. LASIX [Concomitant]
  4. COREG [Concomitant]
  5. ZOCOR [Concomitant]

REACTIONS (1)
  - Throat cancer [Fatal]
